FAERS Safety Report 15478097 (Version 1)
Quarter: 2018Q4

REPORT INFORMATION
  Report Type: Spontaneous
  Country: US (occurrence: US)
  Receive Date: 20181002
  Receipt Date: 20181002
  Transmission Date: 20190205
  Serious: No
  Sender: FDA-Public Use
  Company Number: None

PATIENT
  Age: 62 Year
  Sex: Male
  Weight: 92.25 kg

DRUGS (3)
  1. ALREX [Concomitant]
     Active Substance: LOTEPREDNOL ETABONATE
  2. CLONAZEPAM PRODUCT MARKETED BY ACTAVIS PHARMA , [Suspect]
     Active Substance: CLONAZEPAM
     Indication: ANXIETY
     Dosage: ?          QUANTITY:270 TABLET(S);OTHER ROUTE:BY MOUTH?
     Route: 048
     Dates: start: 20180926, end: 20180928
  3. PANTANOL [Concomitant]

REACTIONS (1)
  - Drug ineffective [None]

NARRATIVE: CASE EVENT DATE: 20180927
